FAERS Safety Report 4364936-2 (Version None)
Quarter: 2004Q2

REPORT INFORMATION
  Report Type: 
  Country: None (occurrence: None)
  Receive Date: 20040524
  Receipt Date: 19991217
  Transmission Date: 20050107
  Serious: Yes (Hospitalization)
  Sender: FDA-Public Use
  Company Number: PERIO-1999-0480

PATIENT
  Age: 60 Year
  Sex: Male

DRUGS (2)
  1. PERIOSTAT [Suspect]
     Indication: PERIODONTAL DISEASE
     Dosage: 20 MG, BID, PER ORAL
     Route: 048
     Dates: start: 19991008, end: 19991020
  2. PERIOSTAT [Suspect]
     Indication: PERIODONTITIS
     Dosage: 20 MG, BID, PER ORAL
     Route: 048
     Dates: start: 19991008, end: 19991020

REACTIONS (2)
  - GASTROINTESTINAL HAEMORRHAGE [None]
  - STOMACH DISCOMFORT [None]
